FAERS Safety Report 19124375 (Version 1)
Quarter: 2021Q2

REPORT INFORMATION
  Report Type: Spontaneous
  Country: GR (occurrence: GR)
  Receive Date: 20210412
  Receipt Date: 20210412
  Transmission Date: 20210717
  Serious: Yes (Hospitalization)
  Sender: FDA-Public Use
  Company Number: NVSC2021GR076702

PATIENT
  Age: 51 Year
  Sex: Male
  Weight: 57 kg

DRUGS (4)
  1. PROLEUKIN [Suspect]
     Active Substance: ALDESLEUKIN
     Indication: NEOPLASM
     Dosage: 38400000 IU, Q8H
     Route: 042
     Dates: start: 20210304, end: 20210305
  2. PEMBROLIZUMAB. [Suspect]
     Active Substance: PEMBROLIZUMAB
     Indication: NEOPLASM
     Dosage: 200 MG, QD
     Route: 042
     Dates: start: 20210204, end: 20210204
  3. CYCLOPHOSPHAMIDE. [Suspect]
     Active Substance: CYCLOPHOSPHAMIDE
     Indication: NEOPLASM
     Dosage: 3900 MG, QD
     Route: 042
     Dates: start: 20210223, end: 20210224
  4. FLUDARABINE [Suspect]
     Active Substance: FLUDARABINE PHOSPHATE
     Indication: NEOPLASM
     Dosage: 42.5 MG, QD
     Route: 042
     Dates: start: 20210225, end: 20210302

REACTIONS (2)
  - Thrombocytopenia [Not Recovered/Not Resolved]
  - Leukopenia [Not Recovered/Not Resolved]

NARRATIVE: CASE EVENT DATE: 20210316
